FAERS Safety Report 4313606-5 (Version None)
Quarter: 2004Q1

REPORT INFORMATION
  Report Type: 
  Country: None (occurrence: None)
  Receive Date: 20040308
  Receipt Date: 19960119
  Transmission Date: 20041129
  Serious: Yes (Other)
  Sender: FDA-Public Use
  Company Number: 941960020

PATIENT
  Age: 37 Year
  Sex: Female
  Weight: 47 kg

DRUGS (2)
  1. DOXORUBICIN HCL [Suspect]
     Indication: NEOPLASM MALIGNANT
     Dosage: AES#DOSE_SP_01: 45 MG/M2 [65.7 MG CALC], Q3W
     Route: 042
     Dates: start: 19951229
  2. CYCLOPHOSPHAMIDE [Suspect]
     Indication: NEOPLASM MALIGNANT
     Dosage: AES#DOSE_SP_01: 500 MG/M2 [730.0 MG CALC], Q3W
     Route: 042
     Dates: start: 19951229

REACTIONS (1)
  - ABORTION SPONTANEOUS [None]
